FAERS Safety Report 8182377-7 (Version None)
Quarter: 2012Q1

REPORT INFORMATION
  Report Type: 
  Country: None (occurrence: None)
  Receive Date: 20120303
  Receipt Date: 20120228
  Transmission Date: 20120608
  Serious: Yes (Hospitalization)
  Sender: FDA-Public Use
  Company Number: DE-ABBOTT-12P-062-0909672-00

PATIENT
  Sex: Male

DRUGS (6)
  1. HUMIRA [Suspect]
     Indication: CROHN'S DISEASE
     Route: 058
     Dates: start: 20111221
  2. PANTOPRAZOLE [Concomitant]
     Indication: PRODUCT USED FOR UNKNOWN INDICATION
  3. AZATHIOPRINE [Concomitant]
     Indication: PRODUCT USED FOR UNKNOWN INDICATION
  4. OPIOIDS [Concomitant]
     Indication: PRODUCT USED FOR UNKNOWN INDICATION
  5. CORTISONE ACETATE [Concomitant]
     Indication: PRODUCT USED FOR UNKNOWN INDICATION
  6. NOVALGIN [Concomitant]
     Indication: PRODUCT USED FOR UNKNOWN INDICATION

REACTIONS (1)
  - ILEUS [None]
